FAERS Safety Report 6690840-0 (Version None)
Quarter: 2010Q2

REPORT INFORMATION
  Report Type: 
  Country: None (occurrence: None)
  Receive Date: 20100421
  Receipt Date: 20100416
  Transmission Date: 20101027
  Serious: Yes (Hospitalization)
  Sender: FDA-Public Use
  Company Number: US-CVT-100053

PATIENT

DRUGS (9)
  1. RANEXA [Suspect]
     Indication: DRUG USE FOR UNKNOWN INDICATION
     Dosage: 500 MG, UNK
     Dates: start: 20091101, end: 20100115
  2. TOPROL-XL [Concomitant]
  3. LIPITOR /01326101/ [Concomitant]
  4. ASPIRIN [Concomitant]
  5. BENICAR HCT [Concomitant]
  6. MULTIVITAMIN /00831701/ [Concomitant]
  7. VITAMIN D [Concomitant]
  8. FOSAMAX [Concomitant]
  9. FOLIC ACID [Concomitant]

REACTIONS (5)
  - DECREASED APPETITE [None]
  - DIZZINESS [None]
  - HYPONATRAEMIA [None]
  - NAUSEA [None]
  - VOMITING [None]
